FAERS Safety Report 9922401 (Version 1)
Quarter: 2014Q1

REPORT INFORMATION
  Report Type: Spontaneous
  Country: US (occurrence: None)
  Receive Date: 20140224
  Receipt Date: 20140224
  Transmission Date: 20141002
  Serious: Yes (Disabling)
  Sender: FDA-Public Use
  Company Number: None

PATIENT
  Age: 41 Year
  Sex: Male
  Weight: 86.18 kg

DRUGS (1)
  1. CIPROFLOXACIN [Suspect]
     Indication: ANTIBIOTIC THERAPY
     Dosage: 1 PILLS TWICE DAILY
     Route: 048
     Dates: start: 20140128, end: 20140207

REACTIONS (3)
  - Arthralgia [None]
  - Gait disturbance [None]
  - Tendon injury [None]
